FAERS Safety Report 9970854 (Version 1)
Quarter: 2014Q1

REPORT INFORMATION
  Report Type: Spontaneous
  Country: US (occurrence: US)
  Receive Date: 20140306
  Receipt Date: 20140306
  Transmission Date: 20141002
  Serious: No
  Sender: FDA-Public Use
  Company Number: US-ABBVIE-13P-163-1152161-00

PATIENT
  Age: 39 Year
  Sex: Male
  Weight: 94.43 kg

DRUGS (5)
  1. HUMIRA [Suspect]
     Indication: ANKYLOSING SPONDYLITIS
     Dates: start: 201304
  2. CLONOPIN [Concomitant]
     Indication: ANXIETY
  3. LORTAB [Concomitant]
     Indication: PAIN
  4. LYRICA [Concomitant]
     Indication: PAIN
  5. DURAGESIC PATCH [Concomitant]
     Indication: PAIN

REACTIONS (1)
  - Rash vesicular [Not Recovered/Not Resolved]
